FAERS Safety Report 9450424 (Version 1)
Quarter: 2013Q3

REPORT INFORMATION
  Report Type: Spontaneous
  Country: US (occurrence: US)
  Receive Date: 20130809
  Receipt Date: 20130809
  Transmission Date: 20140515
  Serious: Yes (Other)
  Sender: FDA-Public Use
  Company Number: US-JNJFOC-20130802659

PATIENT
  Age: 13 Year
  Sex: Male

DRUGS (1)
  1. METHYLPHENIDATE HCL (WATSON) [Suspect]
     Indication: ATTENTION DEFICIT/HYPERACTIVITY DISORDER
     Route: 048
     Dates: start: 20130720

REACTIONS (5)
  - Haemorrhoids [Not Recovered/Not Resolved]
  - Lethargy [Not Recovered/Not Resolved]
  - Nausea [Recovering/Resolving]
  - Drug effect decreased [Not Recovered/Not Resolved]
  - Disturbance in attention [Unknown]
